FAERS Safety Report 15738517 (Version 1)
Quarter: 2018Q4

REPORT INFORMATION
  Report Type: Spontaneous
  Country: US (occurrence: US)
  Receive Date: 20181219
  Receipt Date: 20181219
  Transmission Date: 20190205
  Serious: No
  Sender: FDA-Public Use
  Company Number: US-PFIZER INC-2018517498

PATIENT
  Age: 13 Year
  Sex: Male

DRUGS (1)
  1. GENOTROPIN [Suspect]
     Active Substance: SOMATROPIN
     Dosage: 2.2 MG, (6 DAYS A WEEK)
     Dates: start: 20170206

REACTIONS (4)
  - Chest pain [Unknown]
  - Blood thyroid stimulating hormone increased [Unknown]
  - Back pain [Unknown]
  - Blood insulin increased [Unknown]
